FAERS Safety Report 17318631 (Version 1)
Quarter: 2020Q1

REPORT INFORMATION
  Report Type: Spontaneous
  Country: US (occurrence: US)
  Receive Date: 20200124
  Receipt Date: 20200124
  Transmission Date: 20200409
  Serious: Yes (Death, Hospitalization)
  Sender: FDA-Public Use
  Company Number: US-ASTRAZENECA-2020SE10329

PATIENT
  Age: 25 Year
  Sex: Male

DRUGS (3)
  1. ETHYLENE GLYCOL [Suspect]
     Active Substance: ETHYLENE GLYCOL
     Route: 048
  2. LITHIUM. [Suspect]
     Active Substance: LITHIUM
     Route: 048
  3. QUETIAPINE EXTENDED RELEASE [Suspect]
     Active Substance: QUETIAPINE
     Route: 048

REACTIONS (2)
  - Completed suicide [Fatal]
  - Toxicity to various agents [Fatal]
